FAERS Safety Report 7384175-0 (Version None)
Quarter: 2011Q1

REPORT INFORMATION
  Report Type: 
  Country: None (occurrence: None)
  Receive Date: 20110330
  Receipt Date: 20110321
  Transmission Date: 20110831
  Serious: Yes (Death, Hospitalization)
  Sender: FDA-Public Use
  Company Number: B0708436A

PATIENT
  Age: 60 Year
  Sex: Female

DRUGS (2)
  1. REVOLADE [Suspect]
     Dosage: 50MG PER DAY
     Route: 048
  2. ANTICOAGULANT [Concomitant]
     Indication: ANTIPHOSPHOLIPID SYNDROME
     Route: 048

REACTIONS (3)
  - CEREBRAL HAEMORRHAGE [None]
  - PULMONARY EMBOLISM [None]
  - ADRENAL CORTEX NECROSIS [None]
